FAERS Safety Report 9613742 (Version 1)
Quarter: 2013Q4

REPORT INFORMATION
  Report Type: Report from Study
  Country: NL (occurrence: NL)
  Receive Date: 20131010
  Receipt Date: 20131010
  Transmission Date: 20140711
  Serious: Yes (Hospitalization)
  Sender: FDA-Public Use
  Company Number: NL-ROCHE-1286063

PATIENT
  Sex: 0

DRUGS (2)
  1. PEG-INTERFERON ALFA 2A [Suspect]
     Indication: CHRONIC HEPATITIS C
     Route: 065
  2. PEG-INTERFERON ALFA 2A [Suspect]
     Indication: HEPATIC FIBROSIS

REACTIONS (5)
  - Haemorrhage [Unknown]
  - Thrombocytopenia [Unknown]
  - Epistaxis [Unknown]
  - Gingival bleeding [Unknown]
  - Haematuria [Unknown]
